FAERS Safety Report 15049487 (Version 1)
Quarter: 2018Q2

REPORT INFORMATION
  Report Type: Spontaneous
  Country: GR (occurrence: GR)
  Receive Date: 20180622
  Receipt Date: 20180622
  Transmission Date: 20180711
  Serious: Yes (Other)
  Sender: FDA-Public Use
  Company Number: GR-STRIDES ARCOLAB LIMITED-2018SP005186

PATIENT

DRUGS (3)
  1. VANCOMYCIN [Suspect]
     Active Substance: VANCOMYCIN
     Indication: SEPTIC SHOCK
     Dosage: 1 G, UNKNOWN
     Route: 042
     Dates: start: 2017
  2. CEFTRIAXONE. [Suspect]
     Active Substance: CEFTRIAXONE
     Indication: SEPTIC SHOCK
     Dosage: 2 G, UNKNOWN
     Route: 042
     Dates: start: 2017
  3. GENTAMICIN. [Suspect]
     Active Substance: GENTAMICIN
     Indication: SEPTIC SHOCK
     Dosage: 80 MG, UNKNOWN
     Route: 042
     Dates: start: 2017

REACTIONS (1)
  - Drug ineffective [Unknown]

NARRATIVE: CASE EVENT DATE: 2017
